FAERS Safety Report 4966570-X (Version None)
Quarter: 2006Q2

REPORT INFORMATION
  Report Type: 
  Country: None (occurrence: None)
  Receive Date: 20060407
  Receipt Date: 20060327
  Transmission Date: 20061013
  Serious: Yes (Hospitalization)
  Sender: FDA-Public Use
  Company Number: FR-JNJFOC-20060307318

PATIENT
  Age: 45 Year
  Sex: Female
  Weight: 101 kg

DRUGS (7)
  1. HALDOL [Suspect]
     Indication: SCHIZOPHRENIA
     Route: 030
  2. CORTICOSTEROID [Suspect]
     Indication: DRUG USE FOR UNKNOWN INDICATION
  3. DEPAKENE [Concomitant]
     Indication: AFFECTIVE DISORDER
  4. DEPAKENE [Concomitant]
     Indication: EPILEPSY
  5. IMOVANE [Concomitant]
     Indication: INSOMNIA
  6. RENITEC [Concomitant]
  7. ALDACTONE [Concomitant]

REACTIONS (3)
  - BRADYPHRENIA [None]
  - MANIA [None]
  - TREMOR [None]
